FAERS Safety Report 5249491-7 (Version None)
Quarter: 2007Q1

REPORT INFORMATION
  Report Type: 
  Country: None (occurrence: None)
  Receive Date: 20070228
  Receipt Date: 20061211
  Transmission Date: 20070707
  Serious: No
  Sender: FDA-Public Use
  Company Number: US-GLAXOSMITHKLINE-A0631130A

PATIENT
  Age: 52 Year
  Sex: Female

DRUGS (1)
  1. VALTREX [Suspect]
     Dosage: 500MG TWICE PER DAY
     Route: 048

REACTIONS (3)
  - EYE PAIN [None]
  - MUSCLE SPASMS [None]
  - NAUSEA [None]
